FAERS Safety Report 19052469 (Version 1)
Quarter: 2021Q1

REPORT INFORMATION
  Report Type: Spontaneous
  Country: ES (occurrence: ES)
  Receive Date: 20210324
  Receipt Date: 20210324
  Transmission Date: 20210420
  Serious: Yes (Hospitalization, Other)
  Sender: FDA-Public Use
  Company Number: ES-AUROBINDO-AUR-APL-2019-013406

PATIENT
  Age: 32 Year
  Sex: Male

DRUGS (9)
  1. CANNABIS [Concomitant]
     Active Substance: CANNABIS SATIVA SUBSP. INDICA TOP
     Indication: HYPNOTHERAPY
     Dosage: UNK, ONCE A DAY (UNK, DAILY (CURRENTLY BETWEEN 2?4 JOINTS A DAY))
     Route: 065
  2. ALPRAZOLAM. [Suspect]
     Active Substance: ALPRAZOLAM
     Indication: PRODUCT USED FOR UNKNOWN INDICATION
     Dosage: 8 MILLIGRAM, ONCE A DAY
     Route: 048
  3. COCAINE [Concomitant]
     Active Substance: COCAINE
     Indication: PRODUCT USED FOR UNKNOWN INDICATION
     Dosage: UNK (OCCASIONAL INTRANASAL USE OF COCAINE USUALLY ON WEEKENDS)
     Route: 045
  4. PREGABALIN CAPSULES, HARD [Suspect]
     Active Substance: PREGABALIN
     Indication: INSOMNIA
     Dosage: 150 MILLIGRAM, ONCE A DAY (150 MG, 1X/DAY (NOCTURNAL DOSE))
     Route: 048
  5. AMFETAMINE [Concomitant]
     Active Substance: AMPHETAMINE
     Indication: PRODUCT USED FOR UNKNOWN INDICATION
     Dosage: UNK
     Route: 065
  6. LYSERGIDE [Concomitant]
     Active Substance: LYSERGIDE
     Indication: PRODUCT USED FOR UNKNOWN INDICATION
     Dosage: UNK
     Route: 065
  7. METHYLENEDIOXYMETHAMPHETAMINE [Concomitant]
     Active Substance: MIDOMAFETAMINE
     Indication: PRODUCT USED FOR UNKNOWN INDICATION
     Dosage: UNK
     Route: 065
  8. PREGABALIN CAPSULES, HARD [Suspect]
     Active Substance: PREGABALIN
     Dosage: 20 DOSAGE FORM (20 DF, UNK (20 CAPSULES OF 150 MG (EQUIVALENT TO APPROXIMATELY 3 G))
     Route: 048
  9. PREGABALIN CAPSULES, HARD [Suspect]
     Active Substance: PREGABALIN
     Dosage: UNK
     Route: 054

REACTIONS (4)
  - Off label use [Recovering/Resolving]
  - Withdrawal syndrome [Recovered/Resolved]
  - Drug abuse [Recovered/Resolved]
  - Product use issue [Unknown]
